FAERS Safety Report 12633960 (Version 4)
Quarter: 2016Q3

REPORT INFORMATION
  Report Type: Spontaneous
  Country: MX (occurrence: MX)
  Receive Date: 20160809
  Receipt Date: 20160909
  Transmission Date: 20161109
  Serious: Yes (Death, Hospitalization)
  Sender: FDA-Public Use
  Company Number: MX-IPSEN BIOPHARMACEUTICALS, INC.-2016-06663

PATIENT
  Age: 15 Year
  Sex: Female
  Weight: 20 kg

DRUGS (5)
  1. DYSPORT [Suspect]
     Active Substance: ABOBOTULINUMTOXINA
     Indication: PRODUCT USE ISSUE
  2. LEVETIRACETAM. [Concomitant]
     Active Substance: LEVETIRACETAM
     Indication: EPILEPSY
  3. MAGNESIUM VALPROATE [Concomitant]
     Active Substance: VALPROATE MAGNESIUM
     Indication: EPILEPSY
  4. TOPIRAMATE. [Concomitant]
     Active Substance: TOPIRAMATE
     Indication: EPILEPSY
  5. DYSPORT [Suspect]
     Active Substance: ABOBOTULINUMTOXINA
     Indication: SALIVARY HYPERSECRETION
     Dosage: 150 UNITS
     Route: 065
     Dates: start: 20160728, end: 20160728

REACTIONS (2)
  - Respiratory distress [Recovering/Resolving]
  - Atypical pneumonia [Fatal]

NARRATIVE: CASE EVENT DATE: 20160730
